FAERS Safety Report 8990081 (Version 1)
Quarter: 2012Q4

REPORT INFORMATION
  Report Type: 
  Country: US (occurrence: US)
  Receive Date: 20121228
  Receipt Date: 20121228
  Transmission Date: 20130627
  Serious: Yes (Hospitalization, Other)
  Sender: FDA-Public Use
  Company Number: US-TARO-2012P1068241

PATIENT
  Age: 74 Year
  Sex: Male
  Weight: 88.45 kg

DRUGS (8)
  1. WARFARIN [Suspect]
     Dates: start: 20120210, end: 201203
  2. ENOXAPARIN [Suspect]
     Route: 058
     Dates: start: 20120210, end: 201203
  3. ENOXAPARIN [Suspect]
     Route: 058
     Dates: start: 201203, end: 201203
  4. ENOXAPARIN [Suspect]
     Dates: end: 201209
  5. UNSPECIFIED INGREDIENT [Suspect]
     Indication: PANCREATITIS
     Dates: start: 201202
  6. LISINOPRIL [Suspect]
     Indication: HYPERTENSION
     Dates: end: 201209
  7. ATENOLOL [Suspect]
     Indication: HYPERTENSION
     Dates: end: 201209
  8. TRICLORYL [Suspect]
     Indication: BLOOD CHOLESTEROL INCREASED
     Dates: end: 201205

REACTIONS (9)
  - Pancreatitis [Unknown]
  - Pseudocyst [Not Recovered/Not Resolved]
  - Weight decreased [Unknown]
  - Haematuria [Recovered/Resolved]
  - Haemorrhage [Recovered/Resolved]
  - Embolism [Unknown]
  - Portal vein pressure increased [Unknown]
  - Blood pressure decreased [Recovered/Resolved]
  - International normalised ratio increased [Unknown]
